FAERS Safety Report 4920315-8 (Version None)
Quarter: 2006Q1

REPORT INFORMATION
  Report Type: 
  Country: None (occurrence: None)
  Receive Date: 20060113
  Receipt Date: 20051010
  Transmission Date: 20060701
  Serious: No
  Sender: FDA-Public Use
  Company Number: 2005SP003426

PATIENT
  Age: 58 Year
  Sex: Female
  Weight: 90.4926 kg

DRUGS (8)
  1. LUNESTA [Suspect]
     Dosage: SEE IMAGE
     Dates: start: 20051004, end: 20051006
  2. LUNESTA [Suspect]
     Dosage: SEE IMAGE
     Dates: start: 20051007, end: 20051009
  3. LUNESTA [Suspect]
     Dosage: SEE IMAGE
     Dates: start: 20051010, end: 20051025
  4. NITRO [Concomitant]
  5. XANAX [Concomitant]
  6. ALDACTONE [Concomitant]
  7. NEXIUM [Concomitant]
  8. PAMELOR [Concomitant]

REACTIONS (2)
  - ABNORMAL DREAMS [None]
  - DYSGEUSIA [None]
